FAERS Safety Report 4636411-9 (Version None)
Quarter: 2005Q2

REPORT INFORMATION
  Report Type: 
  Country: None (occurrence: None)
  Receive Date: 20050415
  Receipt Date: 20050318
  Transmission Date: 20051028
  Serious: Yes (Life-Threatening)
  Sender: FDA-Public Use
  Company Number: JP-ROCHE-399548

PATIENT
  Age: 22 Year
  Sex: Female

DRUGS (3)
  1. TAMIFLU [Suspect]
     Indication: INFLUENZA
     Route: 048
     Dates: start: 20050309, end: 20050309
  2. PENTCILLIN [Suspect]
     Indication: DRUG USE FOR UNKNOWN INDICATION
     Route: 042
     Dates: start: 20050309, end: 20050309
  3. CALONAL [Concomitant]
     Indication: DRUG USE FOR UNKNOWN INDICATION
     Route: 048
     Dates: start: 20050309, end: 20050309

REACTIONS (3)
  - ANAPHYLACTIC SHOCK [None]
  - LYMPHOCYTE STIMULATION TEST POSITIVE [None]
  - PHARYNGEAL OEDEMA [None]
